FAERS Safety Report 11911712 (Version 2)
Quarter: 2016Q1

REPORT INFORMATION
  Report Type: Spontaneous
  Country: US (occurrence: US)
  Receive Date: 20160112
  Receipt Date: 20160203
  Transmission Date: 20160526
  Serious: Yes (Hospitalization)
  Sender: FDA-Public Use
  Company Number: US-VERTEX PHARMACEUTICALS-2016-000146

PATIENT
  Sex: Female

DRUGS (2)
  1. CAYSTON [Concomitant]
     Active Substance: AZTREONAM
  2. ORKAMBI [Suspect]
     Active Substance: IVACAFTOR\LUMACAFTOR
     Indication: CYSTIC FIBROSIS
     Dosage: 400MG/250 MG, BID
     Route: 048
     Dates: start: 20151211

REACTIONS (1)
  - Infection [Unknown]

NARRATIVE: CASE EVENT DATE: 2015
